FAERS Safety Report 21236347 (Version 1)
Quarter: 2022Q3

REPORT INFORMATION
  Report Type: Spontaneous
  Country: US (occurrence: None)
  Receive Date: 20220822
  Receipt Date: 20220822
  Transmission Date: 20221027
  Serious: Yes (Life-Threatening, Hospitalization)
  Sender: FDA-Public Use
  Company Number: 2022A290258

PATIENT
  Age: 746 Month
  Sex: Male
  Weight: 65.8 kg

DRUGS (1)
  1. BRILINTA [Suspect]
     Active Substance: TICAGRELOR
     Indication: Myocardial infarction
     Route: 048
     Dates: start: 202008

REACTIONS (9)
  - Coma [Unknown]
  - Myocardial infarction [Unknown]
  - Musculoskeletal stiffness [Unknown]
  - Skull fracture [Recovered/Resolved]
  - Cerebrovascular accident [Recovered/Resolved]
  - Fall [Unknown]
  - Cerebral haemorrhage [Unknown]
  - Paranoia [Recovered/Resolved]
  - Weight decreased [Recovering/Resolving]

NARRATIVE: CASE EVENT DATE: 20200801
